FAERS Safety Report 17630399 (Version 1)
Quarter: 2020Q2

REPORT INFORMATION
  Report Type: Spontaneous
  Country: US (occurrence: US)
  Receive Date: 20200403
  Receipt Date: 20200403
  Transmission Date: 20200713
  Serious: No
  Sender: FDA-Public Use
  Company Number: None

PATIENT
  Age: 63 Year
  Sex: Male
  Weight: 81.65 kg

DRUGS (5)
  1. ZOLPIDEM [Suspect]
     Active Substance: ZOLPIDEM TARTRATE
  2. TRAZODONE [Suspect]
     Active Substance: TRAZODONE HYDROCHLORIDE
  3. ESZOPLICONE [Suspect]
     Active Substance: ESZOPICLONE
  4. DOXEPIN [Suspect]
     Active Substance: DOXEPIN
  5. ZALEPLON. [Suspect]
     Active Substance: ZALEPLON

REACTIONS (1)
  - Treatment failure [None]
